FAERS Safety Report 9959812 (Version 1)
Quarter: 2014Q1

REPORT INFORMATION
  Report Type: Report from Study
  Country: US (occurrence: US)
  Receive Date: 20140305
  Receipt Date: 20140305
  Transmission Date: 20141002
  Serious: No
  Sender: FDA-Public Use
  Company Number: US-ABBVIE-13P-163-1106156-00

PATIENT
  Sex: Male
  Weight: 72.64 kg

DRUGS (6)
  1. HUMIRA [Suspect]
     Indication: RHEUMATOID ARTHRITIS
     Route: 058
     Dates: start: 201301
  2. METHOTREXATE [Concomitant]
     Indication: RHEUMATOID ARTHRITIS
     Dosage: EIGHT 2.5MG TABS WEEKLY
     Route: 048
  3. FOLIC ACID [Concomitant]
     Indication: DRUG THERAPY
     Route: 048
  4. PREDNISONE [Concomitant]
     Indication: RHEUMATOID ARTHRITIS
     Route: 048
  5. ENALAPRIL [Concomitant]
     Indication: HYPERTENSION
  6. CARVEDILOL [Concomitant]
     Indication: CARDIAC FAILURE

REACTIONS (1)
  - Sinusitis [Recovered/Resolved]
